FAERS Safety Report 22726114 (Version 8)
Quarter: 2023Q4

REPORT INFORMATION
  Report Type: Report from Study
  Country: US (occurrence: US)
  Receive Date: 20230720
  Receipt Date: 20231226
  Transmission Date: 20240110
  Serious: Yes (Hospitalization, Other)
  Sender: FDA-Public Use
  Company Number: US-ABBVIE-5332945

PATIENT
  Sex: Female
  Weight: 158.7 kg

DRUGS (2)
  1. HUMIRA [Suspect]
     Active Substance: ADALIMUMAB
     Indication: Rheumatoid arthritis
     Dosage: FORM STRENGTH: 40 MILLIGRAM, CITRATE FREE
     Route: 058
     Dates: start: 20230607
  2. HUMIRA [Suspect]
     Active Substance: ADALIMUMAB
     Dosage: FORM STRENGTH: 40 MILLIGRAM, CITRATE FREE?LAST ADMIN DATE: 2023
     Route: 058
     Dates: start: 20230517

REACTIONS (16)
  - Gastrointestinal ulcer haemorrhage [Recovering/Resolving]
  - Gastric ulcer [Unknown]
  - Feeling abnormal [Recovering/Resolving]
  - Gastritis [Unknown]
  - Eschar [Recovering/Resolving]
  - Anaemia [Unknown]
  - Cellulitis [Recovering/Resolving]
  - Faeces discoloured [Unknown]
  - Pelvic operation [Unknown]
  - Gastric ulcer [Unknown]
  - Dizziness [Unknown]
  - Arterial haemorrhage [Recovered/Resolved]
  - Oesophagitis [Unknown]
  - Haemoglobin decreased [Recovering/Resolving]
  - Gastric ulcer [Recovering/Resolving]
  - Haemoglobin abnormal [Unknown]

NARRATIVE: CASE EVENT DATE: 20230101
